FAERS Safety Report 4827074-8 (Version None)
Quarter: 2005Q4

REPORT INFORMATION
  Report Type: 
  Country: None (occurrence: None)
  Receive Date: 20051014
  Receipt Date: 20050617
  Transmission Date: 20060501
  Serious: No
  Sender: FDA-Public Use
  Company Number: 2005SP001463

PATIENT
  Age: 58 Year
  Sex: Female
  Weight: 79.8331 kg

DRUGS (1)
  1. LUNESTA [Suspect]
     Dosage: HS; ORAL
     Route: 048
     Dates: start: 20050616

REACTIONS (7)
  - DISORIENTATION [None]
  - DRUG INEFFECTIVE [None]
  - GAIT DISTURBANCE [None]
  - LETHARGY [None]
  - MIDDLE INSOMNIA [None]
  - MIGRAINE [None]
  - VOMITING [None]
